FAERS Safety Report 9856554 (Version 2)
Quarter: 2019Q2

REPORT INFORMATION
  Report Type: Report from Study
  Country: KR (occurrence: KR)
  Receive Date: 20140130
  Receipt Date: 20190520
  Transmission Date: 20190711
  Serious: Yes (Death, Life-Threatening)
  Sender: FDA-Public Use
  Company Number: KR-OTSUKA-JP-2014-10329

PATIENT
  Age: 51 Year
  Sex: Female

DRUGS (3)
  1. BORTEZOMIB. [Concomitant]
     Active Substance: BORTEZOMIB
     Indication: STEM CELL TRANSPLANT
     Dosage: 1.3 MG/M^2 IV
     Route: 042
     Dates: start: 20120518, end: 20120525
  2. BUSULFAN. [Suspect]
     Active Substance: BUSULFAN
     Indication: STEM CELL TRANSPLANT
     Dosage: 3.2 MG/KG, QD
     Route: 042
     Dates: start: 20120519, end: 20120521
  3. MELPHALAN. [Concomitant]
     Active Substance: MELPHALAN
     Indication: STEM CELL TRANSPLANT
     Dosage: 140 MG/M^2
     Route: 042
     Dates: start: 20120522, end: 20120522

REACTIONS (4)
  - Pneumonia [Fatal]
  - Septic shock [Fatal]
  - Pulmonary oedema [Recovered/Resolved]
  - Hypokalaemia [Recovered/Resolved]

NARRATIVE: CASE EVENT DATE: 20120606
